FAERS Safety Report 25968810 (Version 1)
Quarter: 2025Q4

REPORT INFORMATION
  Report Type: Spontaneous
  Country: EU (occurrence: EU)
  Receive Date: 20251028
  Receipt Date: 20251028
  Transmission Date: 20260118
  Serious: Yes (Hospitalization, Other)
  Sender: AUROBINDO
  Company Number: EU-AEMPS-1762889

PATIENT
  Sex: Female

DRUGS (2)
  1. FULVESTRANT [Suspect]
     Active Substance: FULVESTRANT
     Indication: Breast neoplasm
     Dosage: 500 MILLIGRAM
     Route: 030
     Dates: start: 20250716
  2. ENOXAPARIN SODIUM [Concomitant]
     Active Substance: ENOXAPARIN SODIUM
     Indication: Pulmonary thrombosis
     Dosage: 100 MILLIGRAM, TWO TIMES A DAY
     Route: 058
     Dates: start: 20250708

REACTIONS (4)
  - Syncope [Unknown]
  - Hypotension [Unknown]
  - Haematoma muscle [Unknown]
  - Contraindicated product administered [Unknown]

NARRATIVE: CASE EVENT DATE: 20250716
